FAERS Safety Report 10650660 (Version 1)
Quarter: 2014Q4

REPORT INFORMATION
  Report Type: Spontaneous
  Country: CH (occurrence: CH)
  Receive Date: 20141214
  Receipt Date: 20141214
  Transmission Date: 20150529
  Serious: Yes (Hospitalization)
  Sender: FDA-Public Use
  Company Number: PHHY2014CH158692

PATIENT
  Age: 80 Year
  Sex: Male
  Weight: 58.3 kg

DRUGS (13)
  1. ROCEPHINE [Concomitant]
     Active Substance: CEFTRIAXONE SODIUM
     Indication: STREPTOCOCCAL BACTERAEMIA
     Route: 041
     Dates: start: 20131104, end: 20131113
  2. ACIDE FOLIQUE [Concomitant]
     Active Substance: FOLIC ACID
     Indication: FOLATE DEFICIENCY
     Dosage: 5 MG, QD
     Route: 048
     Dates: start: 20131104
  3. SINTROM [Suspect]
     Active Substance: ACENOCOUMAROL
     Indication: AORTIC VALVE REPLACEMENT
     Route: 048
     Dates: start: 2000, end: 20131104
  4. LIQUEMINE [Suspect]
     Active Substance: HEPARIN SODIUM
     Indication: AORTIC VALVE REPLACEMENT
     Dosage: 20000 IU, QD
     Route: 041
     Dates: start: 20131104, end: 20131112
  5. TOREM [Concomitant]
     Active Substance: TORSEMIDE
     Indication: ESSENTIAL HYPERTENSION
     Dosage: 10 MG, QD
     Route: 048
  6. FLAGYL [Concomitant]
     Active Substance: METRONIDAZOLE\METRONIDAZOLE HYDROCHLORIDE
     Indication: STREPTOCOCCAL BACTERAEMIA
     Route: 041
     Dates: start: 20131104, end: 20131113
  7. CLEXANE [Concomitant]
     Active Substance: ENOXAPARIN SODIUM
     Indication: AORTIC VALVE REPLACEMENT
     Dosage: 60 MG, BID
     Route: 058
     Dates: start: 20131112, end: 20131126
  8. DIGOXIN. [Suspect]
     Active Substance: DIGOXIN
     Indication: ATRIAL FIBRILLATION
     Dosage: 0.25 MG, QD
     Route: 048
     Dates: start: 2000
  9. CLAMOXYL [Concomitant]
     Active Substance: AMOXICILLIN\CLAVULANIC ACID
     Indication: STREPTOCOCCAL BACTERAEMIA
     Dosage: 2 G, QID
     Route: 041
     Dates: start: 20131113, end: 20131212
  10. BUPRENORPHINE HCL [Suspect]
     Active Substance: BUPRENORPHINE HYDROCHLORIDE
     Indication: PAIN
     Dosage: 35 UG, UNK
     Route: 062
     Dates: start: 20131105, end: 20131124
  11. VANCOMYCINE [Concomitant]
     Active Substance: VANCOMYCIN
     Indication: STREPTOCOCCAL BACTERAEMIA
     Dosage: 1000 MG, BID
     Route: 041
     Dates: start: 20131105, end: 20131113
  12. BELOC-ZOC COMP [Concomitant]
     Active Substance: HYDROCHLOROTHIAZIDE\METOPROLOL SUCCINATE
     Indication: ATRIAL FIBRILLATION
     Dosage: 100 MG, QD
     Route: 048
     Dates: start: 2000
  13. CRESTOR [Concomitant]
     Active Substance: ROSUVASTATIN CALCIUM
     Indication: HYPERCHOLESTEROLAEMIA
     Dosage: 10 MG, QD
     Route: 048

REACTIONS (2)
  - Melaena [Recovered/Resolved]
  - Confusional state [Recovered/Resolved]

NARRATIVE: CASE EVENT DATE: 20131027
